FAERS Safety Report 21220916 (Version 1)
Quarter: 2022Q3

REPORT INFORMATION
  Report Type: Spontaneous
  Country: US (occurrence: US)
  Receive Date: 20220817
  Receipt Date: 20220817
  Transmission Date: 20221026
  Serious: No
  Sender: FDA-Public Use
  Company Number: US-SANOFI-01231719

PATIENT
  Age: 79 Year
  Sex: Female

DRUGS (3)
  1. TOUJEO [Suspect]
     Active Substance: INSULIN GLARGINE
     Indication: Type 2 diabetes mellitus
     Dosage: 25 U
  2. TOUJEO [Suspect]
     Active Substance: INSULIN GLARGINE
     Dosage: 30 U
  3. TOUJEO [Suspect]
     Active Substance: INSULIN GLARGINE
     Dosage: 38 U, QD

REACTIONS (2)
  - Pain [Unknown]
  - Memory impairment [Unknown]
